FAERS Safety Report 23152320 (Version 2)
Quarter: 2023Q4

REPORT INFORMATION
  Report Type: Report from Study
  Country: US (occurrence: US)
  Receive Date: 20231107
  Receipt Date: 20231204
  Transmission Date: 20240109
  Serious: No
  Sender: FDA-Public Use
  Company Number: US-ACADIA PHARMACEUTICALS INC.-ACA-2023-PIM-004702

PATIENT
  Sex: Female

DRUGS (19)
  1. NUPLAZID [Suspect]
     Active Substance: PIMAVANSERIN TARTRATE
     Indication: Parkinson^s disease psychosis
     Dosage: 34 MILLIGRAM, QD
     Route: 048
     Dates: start: 202304
  2. METHENAMINE [Concomitant]
     Active Substance: METHENAMINE
  3. RANOLAZINE [Concomitant]
     Active Substance: RANOLAZINE
  4. MOUNJARO [Concomitant]
     Active Substance: TIRZEPATIDE
  5. PROPRANOLOL [Concomitant]
     Active Substance: PROPRANOLOL HYDROCHLORIDE
  6. FEXOFENADINE [Concomitant]
     Active Substance: FEXOFENADINE HYDROCHLORIDE
  7. APLENZIN [Concomitant]
     Active Substance: BUPROPION HYDROBROMIDE
  8. ALPRAZOLAM [Concomitant]
     Active Substance: ALPRAZOLAM
  9. CARBIDOPA LEVODOPA [Concomitant]
     Active Substance: CARBIDOPA\LEVODOPA
  10. HYDROCHLOROTHIAZIDE [Concomitant]
     Active Substance: HYDROCHLOROTHIAZIDE
  11. PRAMIPEXOLE [Concomitant]
     Active Substance: PRAMIPEXOLE
  12. MIRTAZAPINE [Concomitant]
     Active Substance: MIRTAZAPINE
  13. CITALOPRAM [Concomitant]
     Active Substance: CITALOPRAM HYDROBROMIDE
  14. ALBUTEROL [Concomitant]
     Active Substance: ALBUTEROL
  15. PREGABALIN [Concomitant]
     Active Substance: PREGABALIN
  16. IPRATROPIUM BROMIDE [Concomitant]
     Active Substance: IPRATROPIUM BROMIDE\IPRATROPIUM BROMIDE ANHYDROUS
  17. FLUTICASONE [Concomitant]
     Active Substance: FLUTICASONE
  18. THERACRAN [Concomitant]
  19. CARBIDOPA [Concomitant]
     Active Substance: CARBIDOPA

REACTIONS (10)
  - Muscular weakness [Not Recovered/Not Resolved]
  - Balance disorder [Unknown]
  - Dizziness [Unknown]
  - Dysgraphia [Unknown]
  - Tremor [Unknown]
  - Dyspnoea [Unknown]
  - Gait disturbance [Unknown]
  - Nausea [Unknown]
  - Oedema peripheral [Not Recovered/Not Resolved]
  - Constipation [Not Recovered/Not Resolved]
